FAERS Safety Report 8789373 (Version 4)
Quarter: 2013Q1

REPORT INFORMATION
  Report Type: Spontaneous
  Country: US (occurrence: None)
  Receive Date: 20120904
  Receipt Date: 20121024
  Transmission Date: 20140127
  Serious: Yes (Other)
  Sender: FDA-Public Use
  Company Number: JPI-P-024364

PATIENT
  Age: 32 Year
  Sex: Male
  Weight: 99.79 kg

DRUGS (13)
  1. OMEPRAZOLE [Concomitant]
  2. VITAMIN D [Concomitant]
  3. BLOOD PRESSURE MEDICATION [Concomitant]
  4. XYREM [Suspect]
     Indication: NARCOLEPSY
     Dosage: (2.25 GM,2 IN 1 D)
     Route: 048
     Dates: start: 20120301, end: 2012
  5. XYREM [Suspect]
     Indication: SOMNOLENCE
     Dosage: (2.25 GM,2 IN 1 D)
     Route: 048
     Dates: start: 20120301, end: 2012
  6. DULOXETINE HYDROCHLORIDE [Suspect]
     Indication: PRODUCT USED FOR UNKNOWN INDICATION
  7. BUSPIRONE [Suspect]
     Indication: PRODUCT USED FOR UNKNOWN INDICATION
  8. AMPHETAMINE, DEXTROAMPHETAMINE MIXED SALTS [Suspect]
     Indication: NARCOLEPSY
  9. AMPHETAMINE, DEXTROAMPHETAMINE MIXED SALTS [Suspect]
     Indication: SOMNOLENCE
  10. ALPRAZOLAM [Suspect]
     Indication: PRODUCT USED FOR UNKNOWN INDICATION
  11. ATORVASTATIN CALCIUM [Concomitant]
  12. NIACIN [Concomitant]
  13. HYOSCYAMINE [Concomitant]

REACTIONS (18)
  - Convulsion [None]
  - Hyperhidrosis [None]
  - Panic attack [None]
  - Dyspnoea [None]
  - Fatigue [None]
  - Feeling abnormal [None]
  - Middle insomnia [None]
  - Drug effect decreased [None]
  - Anxiety [None]
  - Dehydration [None]
  - Headache [None]
  - Feeling jittery [None]
  - Back pain [None]
  - Tremor [None]
  - Initial insomnia [None]
  - Incorrect dose administered [None]
  - Poor quality sleep [None]
  - Disturbance in attention [None]
